FAERS Safety Report 23312327 (Version 2)
Quarter: 2023Q4

REPORT INFORMATION
  Report Type: Report from Study
  Country: US (occurrence: US)
  Receive Date: 20231219
  Receipt Date: 20231221
  Transmission Date: 20240110
  Serious: Yes (Hospitalization, Other)
  Sender: FDA-Public Use
  Company Number: US-ABBVIE-5546236

PATIENT
  Age: 67 Year
  Sex: Male
  Weight: 101 kg

DRUGS (3)
  1. RINVOQ [Suspect]
     Active Substance: UPADACITINIB
     Indication: Eczema
     Dosage: 15 MG FORM STRENGTH
     Route: 048
     Dates: end: 20231210
  2. AMLODIPINE [Concomitant]
     Active Substance: AMLODIPINE BESYLATE
     Indication: Hypertension
     Dosage: 5MG
  3. MELOXICAM [Concomitant]
     Active Substance: MELOXICAM
     Indication: Myalgia

REACTIONS (8)
  - Intestinal perforation [Recovering/Resolving]
  - Pruritus [Recovering/Resolving]
  - Abdominal pain [Recovering/Resolving]
  - Lacrimation increased [Recovering/Resolving]
  - Diarrhoea [Recovering/Resolving]
  - Nipple pain [Recovering/Resolving]
  - Unevaluable event [Recovering/Resolving]
  - Intestinal obstruction [Recovering/Resolving]

NARRATIVE: CASE EVENT DATE: 20231208
